FAERS Safety Report 16573742 (Version 2)
Quarter: 2019Q3

REPORT INFORMATION
  Report Type: Report from Study
  Country: PR (occurrence: PR)
  Receive Date: 20190715
  Receipt Date: 20190917
  Transmission Date: 20191004
  Serious: Yes (Other)
  Sender: FDA-Public Use
  Company Number: PR-JNJFOC-20190708534

PATIENT
  Age: 83 Year
  Sex: Female

DRUGS (10)
  1. DIOVAN HCT [Concomitant]
     Active Substance: HYDROCHLOROTHIAZIDE\VALSARTAN
  2. FISH OIL W/TOCOPHEROL [Concomitant]
     Active Substance: FISH OIL\TOCOPHEROL
  3. SIMVASTATIN. [Concomitant]
     Active Substance: SIMVASTATIN
  4. CARAFATE [Concomitant]
     Active Substance: SUCRALFATE
  5. FOLIC ACID. [Concomitant]
     Active Substance: FOLIC ACID
  6. IMBRUVICA [Suspect]
     Active Substance: IBRUTINIB
     Indication: CHRONIC LYMPHOCYTIC LEUKAEMIA
     Dosage: 420 MG, QD
     Route: 048
     Dates: start: 20190610
  7. AMLODIPINE BESYLATE. [Concomitant]
     Active Substance: AMLODIPINE BESYLATE
  8. CLARITIN [Concomitant]
     Active Substance: LORATADINE
  9. CELEBREX [Concomitant]
     Active Substance: CELECOXIB
  10. VITAMIN B COMPLEX [Concomitant]
     Active Substance: CYANOCOBALAMIN\DEXPANTHENOL\NIACINAMIDE\PYRIDOXINE HYDROCHLORIDE\RIBOFLAVIN 5^-PHOSPHATE SODIUM\THIAMINE HYDROCHLORIDE\VITAMIN B COMPLEX

REACTIONS (9)
  - Hepatic cyst [Unknown]
  - Back pain [Recovering/Resolving]
  - Thrombosis [Unknown]
  - Pancreatic cyst [Unknown]
  - Diverticulitis [Unknown]
  - Chest pain [Recovering/Resolving]
  - Haematuria [Unknown]
  - Renal cyst [Unknown]
  - Blood cholesterol increased [Unknown]

NARRATIVE: CASE EVENT DATE: 20190701
